FAERS Safety Report 5996586-6 (Version None)
Quarter: 2008Q4

REPORT INFORMATION
  Report Type: 
  Country: None (occurrence: None)
  Receive Date: 20081212
  Receipt Date: 20081202
  Transmission Date: 20090506
  Serious: Yes (Other)
  Sender: FDA-Public Use
  Company Number: US-ABBOTT-08P-163-0490850-00

PATIENT
  Sex: Male

DRUGS (2)
  1. HUMIRA [Suspect]
     Indication: PSORIASIS
     Route: 058
     Dates: start: 20080101, end: 20081204
  2. UNKNOWN MEDICATIONS [Concomitant]
     Indication: PSORIASIS
     Route: 061

REACTIONS (2)
  - B-CELL LYMPHOMA [None]
  - SKIN DISCOLOURATION [None]
